FAERS Safety Report 8561265 (Version 4)
Quarter: 2012Q4

REPORT INFORMATION
  Report Type: 
  Country: US (occurrence: US)
  Receive Date: 20120514
  Receipt Date: 20121008
  Transmission Date: 20130627
  Serious: Yes (Hospitalization)
  Sender: FDA-Public Use
  Company Number: US-AMGEN-USASP2012028620

PATIENT
  Age: 86 Year
  Sex: Male
  Weight: 74.83 kg

DRUGS (4)
  1. PROCRIT [Suspect]
     Indication: RENAL FAILURE CHRONIC
     Dosage: 20000 IU, qwk
     Dates: start: 201204, end: 201204
  2. PROCRIT [Suspect]
     Dosage: 20000 IU, qwk
     Route: 058
     Dates: start: 201107, end: 201204
  3. PROCRIT [Suspect]
     Dosage: UNK
     Route: 058
     Dates: start: 20111024
  4. IRON [Concomitant]
     Dosage: UNK
     Dates: start: 20011213

REACTIONS (12)
  - Haematocrit decreased [Unknown]
  - Hypotension [Unknown]
  - Myocardial ischaemia [Unknown]
  - Cardiac failure [Unknown]
  - Pneumonia [Unknown]
  - Abasia [Unknown]
  - Blood product transfusion dependent [Unknown]
  - Therapeutic response decreased [Unknown]
  - Iron deficiency [Unknown]
  - Osteoarthritis [Unknown]
  - Anaemia [Unknown]
  - Pyrexia [Unknown]
